FAERS Safety Report 7536098-1 (Version None)
Quarter: 2011Q2

REPORT INFORMATION
  Report Type: 
  Country: None (occurrence: None)
  Receive Date: 20110609
  Receipt Date: 20110526
  Transmission Date: 20111010
  Serious: Yes (Hospitalization, Other)
  Sender: FDA-Public Use
  Company Number: US-BAYER-201033807NA

PATIENT
  Age: 34 Year
  Sex: Female

DRUGS (11)
  1. YAZ [Suspect]
     Indication: CONTRACEPTION
     Route: 048
     Dates: start: 20060101, end: 20070615
  2. YASMIN [Suspect]
     Indication: PRODUCT USED FOR UNKNOWN INDICATION
     Dosage: UNK
     Route: 048
     Dates: start: 20070615
  3. NSAID'S [Concomitant]
  4. NAPROSYN [Concomitant]
     Dosage: UNK
     Dates: start: 20070424
  5. DEPO-PROVERA [Concomitant]
  6. ALBUTEROL SULFATE AUTOHALER [Concomitant]
  7. MARIJUANA [Concomitant]
     Dosage: USE DURING THE 20 DAYS BEFORE THE ONSET OF INJURIES (PER PFS)
  8. ANTIMIGRAINE PREPARATIONS [Concomitant]
     Indication: MIGRAINE
  9. COCAINE [Concomitant]
     Dosage: USE DURING THE 20 DAYS BEFORE THE ONSET OF INJURIES (PER PFS)
  10. DROSPIRENONE AND ETHINYL ESTRADIOL [Suspect]
     Indication: PRODUCT USED FOR UNKNOWN INDICATION
     Route: 048
  11. NAPROXEN SODIUM + PSEUDOEPHEDRINE [Concomitant]
     Route: 048

REACTIONS (2)
  - ISCHAEMIC STROKE [None]
  - CEREBROVASCULAR ACCIDENT [None]
